FAERS Safety Report 12923310 (Version 3)
Quarter: 2016Q4

REPORT INFORMATION
  Report Type: Spontaneous
  Country: FR (occurrence: FR)
  Receive Date: 20161108
  Receipt Date: 20161123
  Transmission Date: 20170207
  Serious: Yes (Life-Threatening, Other)
  Sender: FDA-Public Use
  Company Number: FR-PFM-2016-01479

PATIENT
  Age: 64 Year
  Sex: Male

DRUGS (2)
  1. CARBOPLATIN HOSPIRA [Suspect]
     Active Substance: CARBOPLATIN
     Indication: LUNG SQUAMOUS CELL CARCINOMA STAGE 0
     Dosage: 480 MG, 2 SINGLE ADMINISTRATION
     Route: 042
     Dates: start: 20160113, end: 20160203
  2. NAVELBINE [Suspect]
     Active Substance: VINORELBINE TARTRATE
     Indication: LUNG SQUAMOUS CELL CARCINOMA STAGE 0
     Dosage: 55 MG, 4 SINGLE ADMINISTRATION
     Route: 042
     Dates: start: 20160113, end: 20160203

REACTIONS (8)
  - Haemoglobin decreased [None]
  - Cough [Recovered/Resolved]
  - Dyspnoea exertional [Recovered/Resolved]
  - Thrombocytopenia [Recovering/Resolving]
  - Activated partial thromboplastin time prolonged [None]
  - Prothrombin time shortened [None]
  - Haemoptysis [Recovered/Resolved]
  - White blood cell count decreased [None]

NARRATIVE: CASE EVENT DATE: 20160113
